FAERS Safety Report 19220143 (Version 1)
Quarter: 2021Q2

REPORT INFORMATION
  Report Type: Report from Study
  Country: DE (occurrence: DE)
  Receive Date: 20210505
  Receipt Date: 20210505
  Transmission Date: 20210717
  Serious: Yes (Hospitalization)
  Sender: FDA-Public Use
  Company Number: DE-BIOGEN-2021BI01007484

PATIENT
  Age: 50 Year
  Sex: Female

DRUGS (1)
  1. TECFIDERA [Suspect]
     Active Substance: DIMETHYL FUMARATE
     Indication: PRODUCT USED FOR UNKNOWN INDICATION
     Route: 065

REACTIONS (6)
  - Balance disorder [Unknown]
  - Intentional underdose [Unknown]
  - Hot flush [Unknown]
  - Multiple sclerosis relapse [Recovered/Resolved]
  - Magnetic resonance imaging abnormal [Unknown]
  - Influenza [Unknown]

NARRATIVE: CASE EVENT DATE: 2017
